FAERS Safety Report 6646428-0 (Version None)
Quarter: 2010Q1

REPORT INFORMATION
  Report Type: 
  Country: None (occurrence: None)
  Receive Date: 20100322
  Receipt Date: 20100322
  Transmission Date: 20100710
  Serious: No
  Sender: FDA-Public Use
  Company Number: None

PATIENT
  Age: 6 Year
  Sex: Female
  Weight: 15.4223 kg

DRUGS (3)
  1. CEFPROZIL [Suspect]
     Indication: COUGH
     Dosage: 4ML TWICE DAILY MOUTH
     Route: 048
     Dates: start: 20091215, end: 20091216
  2. CEFPROZIL [Suspect]
     Indication: EAR INFECTION
     Dosage: 4ML TWICE DAILY MOUTH
     Route: 048
     Dates: start: 20091215, end: 20091216
  3. CEFPROZIL [Suspect]
     Indication: SINUSITIS
     Dosage: 4ML TWICE DAILY MOUTH
     Route: 048
     Dates: start: 20091215, end: 20091216

REACTIONS (3)
  - FATIGUE [None]
  - MYDRIASIS [None]
  - PYREXIA [None]
